FAERS Safety Report 18278598 (Version 4)
Quarter: 2020Q4

REPORT INFORMATION
  Report Type: Report from Study
  Country: US (occurrence: US)
  Receive Date: 20200917
  Receipt Date: 20201204
  Transmission Date: 20210113
  Serious: Yes (Hospitalization)
  Sender: FDA-Public Use
  Company Number: US-BIOVITRUM-2020US4346

PATIENT
  Age: 6 Month
  Sex: Female

DRUGS (2)
  1. KINERET [Suspect]
     Active Substance: ANAKINRA
     Indication: PYREXIA
     Dosage: 7.5 MG
     Route: 058
     Dates: start: 20200817
  2. KINERET [Suspect]
     Active Substance: ANAKINRA
     Dosage: 7.5 MG
     Route: 058
     Dates: start: 20200807

REACTIONS (12)
  - Dermatitis diaper [Unknown]
  - Infection [Unknown]
  - Limb mass [Unknown]
  - Condition aggravated [Unknown]
  - Vomiting [Recovered/Resolved]
  - Neck mass [Unknown]
  - Pyrexia [Unknown]
  - White blood cell count decreased [Unknown]
  - Injection site pain [Unknown]
  - Crying [Unknown]
  - Injection site rash [Unknown]
  - Off label use [Unknown]

NARRATIVE: CASE EVENT DATE: 20200817
